FAERS Safety Report 22621207 (Version 1)
Quarter: 2023Q2

REPORT INFORMATION
  Report Type: Spontaneous
  Country: US (occurrence: None)
  Receive Date: 20230616
  Receipt Date: 20230616
  Transmission Date: 20230722
  Serious: No
  Sender: FDA-Public Use
  Company Number: None

PATIENT
  Age: 79 Year
  Sex: Female

DRUGS (2)
  1. CAPECITABINE [Suspect]
     Active Substance: CAPECITABINE
     Dosage: OTHER FREQUENCY : AM;?
     Route: 048
  2. CAPECITABINE [Suspect]
     Active Substance: CAPECITABINE
     Dosage: OTHER FREQUENCY : PM;?
     Route: 048

REACTIONS (7)
  - Memory impairment [None]
  - Vomiting [None]
  - Diarrhoea [None]
  - Mouth swelling [None]
  - Oedema peripheral [None]
  - Sensation of foreign body [None]
  - Therapy interrupted [None]

NARRATIVE: CASE EVENT DATE: 20230531
